FAERS Safety Report 6571052-8 (Version None)
Quarter: 2010Q1

REPORT INFORMATION
  Report Type: 
  Country: None (occurrence: None)
  Receive Date: 20100202
  Receipt Date: 20100202
  Transmission Date: 20100710
  Serious: No
  Sender: FDA-Public Use
  Company Number: None

PATIENT
  Sex: Male
  Weight: 71.7 kg

DRUGS (5)
  1. CYTARABINE [Suspect]
     Dosage: 2240 MG
     Dates: end: 20091016
  2. MERCAPTOPURINE [Suspect]
     Dosage: 8800 MG
     Dates: end: 20091016
  3. METHOTREXATE [Suspect]
     Dosage: 60 MG
  4. PEG-L ASPARAGINASE (PEGASPARGASE, ONCOSPAR) [Suspect]
     Dosage: 9250 MG
     Dates: end: 20091020
  5. VINCRISTINE SULFATE [Suspect]
     Dosage: 8 MG
     Dates: end: 20091027

REACTIONS (2)
  - BLOOD BILIRUBIN INCREASED [None]
  - HYPERGLYCAEMIA [None]
